FAERS Safety Report 10175291 (Version 1)
Quarter: 2014Q2

REPORT INFORMATION
  Report Type: Spontaneous
  Country: US (occurrence: US)
  Receive Date: 20140515
  Receipt Date: 20140515
  Transmission Date: 20141212
  Serious: No
  Sender: FDA-Public Use
  Company Number: US-VIVUS-2014V1000205

PATIENT
  Sex: Female
  Weight: 80.36 kg

DRUGS (11)
  1. QSYMIA 15MG/92MG [Suspect]
     Indication: WEIGHT DECREASED
     Route: 048
     Dates: start: 2014
  2. QSYMIA 11.25MG/69MG [Suspect]
     Indication: WEIGHT DECREASED
     Route: 048
     Dates: start: 2014, end: 2014
  3. QSYMIA 7.5MG/46MG [Suspect]
     Indication: WEIGHT DECREASED
     Route: 048
     Dates: start: 2013, end: 2014
  4. QSYMIA 3.75MG/23MG [Suspect]
     Indication: WEIGHT DECREASED
     Route: 048
     Dates: start: 2013, end: 2013
  5. SIMVASTATIN [Concomitant]
     Indication: DIABETES MELLITUS
  6. LISINOPRIL [Concomitant]
     Indication: DIABETES MELLITUS
  7. GABAPENTIN [Concomitant]
     Indication: HOT FLUSH
  8. MELOXICAM [Concomitant]
     Indication: PLANTAR FASCIITIS
  9. MELOXICAM [Concomitant]
     Indication: ROTATOR CUFF SYNDROME
  10. XANAX [Concomitant]
     Indication: ANXIETY
  11. SOLODYN [Concomitant]
     Indication: ACNE
     Dates: start: 2014

REACTIONS (8)
  - Tongue coated [Recovering/Resolving]
  - Night sweats [Not Recovered/Not Resolved]
  - Epistaxis [Not Recovered/Not Resolved]
  - Nasal dryness [Not Recovered/Not Resolved]
  - Dry mouth [Not Recovered/Not Resolved]
  - Dry eye [Recovering/Resolving]
  - Dysgeusia [Not Recovered/Not Resolved]
  - Paraesthesia [Not Recovered/Not Resolved]
